FAERS Safety Report 5728295-2 (Version None)
Quarter: 2008Q2

REPORT INFORMATION
  Report Type: 
  Country: None (occurrence: None)
  Receive Date: 20080430
  Receipt Date: 20080128
  Transmission Date: 20081010
  Serious: No
  Sender: FDA-Public Use
  Company Number: 2008PV034051

PATIENT
  Age: 63 Year
  Sex: Male

DRUGS (6)
  1. SYMLIN [Suspect]
     Indication: TYPE 2 DIABETES MELLITUS
     Dosage: 60 MCG;TID;SC
     Route: 058
     Dates: start: 20080124
  2. NOVOLOG [Concomitant]
  3. LANTUS [Concomitant]
  4. ACTOS [Concomitant]
  5. PRANDIN [Concomitant]
  6. METFORMIN [Concomitant]

REACTIONS (3)
  - BLOOD GLUCOSE INCREASED [None]
  - DRUG EFFECT DECREASED [None]
  - NAUSEA [None]
